FAERS Safety Report 9450583 (Version 2)
Quarter: 2013Q3

REPORT INFORMATION
  Report Type: Spontaneous
  Country: IT (occurrence: IT)
  Receive Date: 20130809
  Receipt Date: 20130924
  Transmission Date: 20140515
  Serious: Yes (Hospitalization)
  Sender: FDA-Public Use
  Company Number: IT-SANOFI-AVENTIS-2013SA077675

PATIENT
  Age: 86 Year
  Sex: Female

DRUGS (8)
  1. CLEXANE [Suspect]
     Indication: FEMUR FRACTURE
     Dosage: DOSE:1 UNIT(S)
     Route: 058
     Dates: start: 20130701, end: 20130722
  2. COUMADIN [Suspect]
     Indication: ATRIAL FIBRILLATION
     Route: 048
     Dates: start: 20130715, end: 20130720
  3. FLUTICASONE PROPIONATE/SALMETEROL XINAFOATE [Concomitant]
  4. HYDROCHLOROTHIAZIDE/TELMISARTAN [Concomitant]
  5. FUROSEMIDE [Concomitant]
     Route: 048
  6. NEBIVOLOL [Concomitant]
     Route: 048
  7. FERRO-GRAD [Concomitant]
  8. FOLINA [Concomitant]

REACTIONS (3)
  - Duodenal ulcer [Recovered/Resolved]
  - Melaena [Recovered/Resolved]
  - Anaemia [Recovered/Resolved]
